FAERS Safety Report 9967704 (Version 1)
Quarter: 2014Q1

REPORT INFORMATION
  Report Type: Report from Study
  Country: US (occurrence: US)
  Receive Date: 20140306
  Receipt Date: 20140306
  Transmission Date: 20141002
  Serious: Yes (Other)
  Sender: FDA-Public Use
  Company Number: US-ROCHE-1344317

PATIENT
  Age: 58 Year
  Sex: Female

DRUGS (11)
  1. LUCENTIS [Suspect]
     Indication: DIABETIC RETINOPATHY
     Route: 050
  2. LUCENTIS [Suspect]
     Indication: DIABETIC RETINAL OEDEMA
  3. LUCENTIS [Suspect]
     Indication: DIABETIC EYE DISEASE
  4. AVASTIN [Suspect]
     Indication: PRODUCT USED FOR UNKNOWN INDICATION
     Route: 065
     Dates: start: 2009
  5. CARVEDILOL [Concomitant]
     Dosage: AS DIRECTED
     Route: 065
  6. GLUCOVANCE [Concomitant]
     Dosage: AS DIRECTED
     Route: 065
  7. LOSARTAN [Concomitant]
     Dosage: AS DIRECTED
     Route: 065
  8. NORVASC [Concomitant]
     Dosage: AS DIRECTED
     Route: 065
  9. OMEGA 3 [Concomitant]
     Dosage: AS DIRECTED
     Route: 065
  10. VITAMIN B12 [Concomitant]
     Dosage: AS DIRECTED
     Route: 065
  11. DIOVAN [Concomitant]
     Dosage: AS DIRECTED
     Route: 065

REACTIONS (14)
  - Macular oedema [Unknown]
  - Cystitis [Unknown]
  - Joint swelling [Unknown]
  - Retinal cyst [Unknown]
  - Vision blurred [Unknown]
  - Visual acuity reduced [Unknown]
  - Cataract nuclear [Unknown]
  - Hyalosis asteroid [Unknown]
  - Retinopathy hypertensive [Unknown]
  - Aneurysm [Unknown]
  - Cataract cortical [Unknown]
  - Foreign body in eye [Unknown]
  - Drug ineffective [Unknown]
  - Off label use [Unknown]
